FAERS Safety Report 21967924 (Version 1)
Quarter: 2023Q1

REPORT INFORMATION
  Report Type: Spontaneous
  Country: US (occurrence: None)
  Receive Date: 20230208
  Receipt Date: 20230208
  Transmission Date: 20230418
  Serious: No
  Sender: FDA-Public Use
  Company Number: 2023A029688

PATIENT
  Sex: Female

DRUGS (1)
  1. SYMBICORT [Suspect]
     Active Substance: BUDESONIDE\FORMOTEROL FUMARATE DIHYDRATE
     Indication: Respiration abnormal
     Dosage: 80/4.5 MCG, 120 INHALATION INHALER, EVERY FOUR HOURS
     Route: 055

REACTIONS (7)
  - Gastrooesophageal reflux disease [Unknown]
  - Dyspnoea [Unknown]
  - Communication disorder [Unknown]
  - Throat irritation [Unknown]
  - Candida infection [Unknown]
  - Product use issue [Unknown]
  - Wrong technique in product usage process [Unknown]
